FAERS Safety Report 7636942-3 (Version None)
Quarter: 2011Q3

REPORT INFORMATION
  Report Type: 
  Country: None (occurrence: None)
  Receive Date: 20110726
  Receipt Date: 20110718
  Transmission Date: 20111222
  Serious: Yes (Other)
  Sender: FDA-Public Use
  Company Number: US-US-EMD SERONO, INC.-7071974

PATIENT
  Sex: Male

DRUGS (5)
  1. REBIF [Suspect]
     Indication: MULTIPLE SCLEROSIS
     Route: 058
     Dates: start: 20050117, end: 20110301
  2. NORTRIPYLINE [Concomitant]
     Indication: MULTIPLE SCLEROSIS
  3. NORTRIPYLINE [Concomitant]
     Indication: SLEEP DISORDER
  4. VERAPAMIL [Concomitant]
     Indication: HYPERTENSION
  5. LISINOPRIL [Concomitant]
     Indication: HYPERTENSION

REACTIONS (2)
  - MALIGNANT MELANOMA [None]
  - VITAMIN B12 DEFICIENCY [None]
